FAERS Safety Report 10062104 (Version 1)
Quarter: 2014Q2

REPORT INFORMATION
  Report Type: Spontaneous
  Country: US (occurrence: None)
  Receive Date: 20140404
  Receipt Date: 20140404
  Transmission Date: 20141212
  Serious: Yes (Hospitalization)
  Sender: FDA-Public Use
  Company Number: None

PATIENT
  Age: 56 Year
  Sex: Male
  Weight: 102.51 kg

DRUGS (2)
  1. STRIBILD [Suspect]
     Route: 048
     Dates: start: 20140113, end: 20140331
  2. SAPHRIS [Suspect]
     Route: 048
     Dates: start: 20140101, end: 20140331

REACTIONS (2)
  - Renal failure acute [None]
  - Rhabdomyolysis [None]
